FAERS Safety Report 6013077-7 (Version None)
Quarter: 2008Q4

REPORT INFORMATION
  Report Type: 
  Country: None (occurrence: None)
  Receive Date: 20081219
  Receipt Date: 20081208
  Transmission Date: 20090506
  Serious: Yes (Hospitalization, Other)
  Sender: FDA-Public Use
  Company Number: US-ELI_LILLY_AND_COMPANY-US200812002418

PATIENT
  Sex: Female
  Weight: 91.383 kg

DRUGS (13)
  1. BYETTA [Suspect]
     Indication: TYPE 2 DIABETES MELLITUS
     Dosage: 5 UG, 2/D
     Route: 058
     Dates: start: 20070201
  2. BYETTA [Suspect]
     Dosage: 10 UG, 2/D
     Route: 058
     Dates: start: 20081028, end: 20081202
  3. METFORMIN HCL [Concomitant]
     Dosage: 1000 MG, 2/D
     Route: 065
     Dates: start: 20070601
  4. HYDROCHLOROTHIAZIDE [Concomitant]
     Dosage: 25 MG, UNKNOWN
     Route: 065
  5. ANTI-DIABETICS [Concomitant]
     Dosage: 50 MG, 2/D
     Route: 065
     Dates: start: 20070601
  6. MOBIC [Concomitant]
     Dosage: 7.5 MG, DAILY (1/D)
     Route: 065
  7. LANTUS [Concomitant]
     Dosage: 10 U, EACH EVENING
     Route: 065
     Dates: start: 20060101
  8. BENAZEPRIL HYDROCHLORIDE [Concomitant]
     Dosage: 40 MG, DAILY (1/D)
     Route: 065
  9. PRANDIN [Concomitant]
     Dosage: UNK, UNKNOWN
     Route: 065
     Dates: start: 20070201
  10. AMARYL [Concomitant]
     Dosage: 4 MG, 2/D
     Route: 065
     Dates: start: 20060101
  11. SIMVASTATIN [Concomitant]
     Dosage: 40 MG, DAILY (1/D)
     Route: 065
     Dates: start: 20070601
  12. SIMVASTATIN [Concomitant]
     Dosage: 20 MG, DAILY (1/D)
     Route: 065
  13. ESTRATEST H.S. [Concomitant]
     Dosage: UNK, UNKNOWN
     Route: 065

REACTIONS (5)
  - ARTHRITIS [None]
  - BLOOD TRIGLYCERIDES INCREASED [None]
  - NEUROPATHY PERIPHERAL [None]
  - PANCREATITIS [None]
  - WEIGHT INCREASED [None]
